FAERS Safety Report 5942155-3 (Version None)
Quarter: 2008Q4

REPORT INFORMATION
  Report Type: 
  Country: None (occurrence: None)
  Receive Date: 20081104
  Receipt Date: 20081104
  Transmission Date: 20090506
  Serious: Yes (Other)
  Sender: FDA-Public Use
  Company Number: None

PATIENT
  Sex: Male
  Weight: 68.9467 kg

DRUGS (2)
  1. DIGOXIN [Suspect]
     Dates: end: 20080401
  2. FLUIDS PRESCRIBED FOR ABDOMINAL EXAMINATIONS [Suspect]
     Dates: start: 20080601, end: 20080901

REACTIONS (7)
  - ABDOMINAL DISTENSION [None]
  - ASTHENIA [None]
  - GAIT DISTURBANCE [None]
  - OEDEMA PERIPHERAL [None]
  - PRODUCT QUALITY ISSUE [None]
  - RECTAL HAEMORRHAGE [None]
  - SECRETION DISCHARGE [None]
